FAERS Safety Report 10090997 (Version 3)
Quarter: 2014Q2

REPORT INFORMATION
  Report Type: Report from Study
  Country: MX (occurrence: MX)
  Receive Date: 20140421
  Receipt Date: 20140429
  Transmission Date: 20141212
  Serious: Yes (Hospitalization, Other)
  Sender: FDA-Public Use
  Company Number: PHHY2013MX029526

PATIENT
  Age: 63 Year
  Sex: Male

DRUGS (7)
  1. TEGRETOL-XR [Suspect]
     Indication: TRIGEMINAL NEURALGIA
     Dosage: 2 DF (400 MG), DAILY
     Route: 048
     Dates: start: 200504
  2. TEGRETOL-XR [Suspect]
     Indication: TUMOUR PAIN
     Dosage: 3 DF (200 MG) DAILY
     Route: 048
  3. TEGRETOL-XR [Suspect]
     Indication: NEURALGIA
     Dosage: 400 MG, UNK
  4. LYRICA [Concomitant]
     Indication: TRIGEMINAL NEURALGIA
     Dosage: UNK UKN, UNK
  5. LYRICA [Concomitant]
     Indication: NEURALGIA
  6. QUINTON [Concomitant]
     Dosage: 2 DF, DAILY
  7. CHEMOTHERAPEUTICS [Concomitant]
     Dosage: UNK UKN, UNK
     Dates: start: 20130228

REACTIONS (9)
  - Pain [Not Recovered/Not Resolved]
  - Meningitis [Recovered/Resolved]
  - Brain neoplasm [Not Recovered/Not Resolved]
  - Neoplasm malignant [Recovered/Resolved]
  - Brain oedema [Unknown]
  - General physical health deterioration [Unknown]
  - Thyroid disorder [Not Recovered/Not Resolved]
  - Anxiety [Not Recovered/Not Resolved]
  - White blood cell count decreased [Not Recovered/Not Resolved]
